FAERS Safety Report 9132546 (Version 1)
Quarter: 2013Q1

REPORT INFORMATION
  Report Type: Spontaneous
  Country: US (occurrence: US)
  Receive Date: 20130120
  Receipt Date: 20130120
  Transmission Date: 20140127
  Serious: No
  Sender: FDA-Public Use
  Company Number: US-ALLERGAN-1213046US

PATIENT
  Sex: 0

DRUGS (1)
  1. BOTOX? [Suspect]
     Indication: MIGRAINE
     Dosage: 200 UNITS, SINGLE
     Route: 030
     Dates: start: 20120912, end: 20120912

REACTIONS (5)
  - Dysgeusia [Unknown]
  - Nausea [Unknown]
  - Dyspepsia [Unknown]
  - Headache [Unknown]
  - Incorrect dose administered [Unknown]
